FAERS Safety Report 10160924 (Version 1)
Quarter: 2014Q2

REPORT INFORMATION
  Report Type: Spontaneous
  Country: DE (occurrence: DE)
  Receive Date: 20140508
  Receipt Date: 20140508
  Transmission Date: 20141212
  Serious: Yes (Other)
  Sender: FDA-Public Use
  Company Number: DE-GILEAD-2014-0101691

PATIENT
  Age: 56 Year
  Sex: Male

DRUGS (4)
  1. RANOLAZINE [Suspect]
     Indication: ANGINA PECTORIS
     Dosage: 750 MG, QD
     Route: 065
  2. ASS [Concomitant]
  3. PLAVIX [Concomitant]
  4. PENTALONG [Concomitant]

REACTIONS (2)
  - Diabetic retinopathy [Unknown]
  - Visual impairment [Unknown]
